FAERS Safety Report 21112224 (Version 1)
Quarter: 2022Q3

REPORT INFORMATION
  Report Type: Spontaneous
  Country: US (occurrence: None)
  Receive Date: 20220721
  Receipt Date: 20220721
  Transmission Date: 20221026
  Serious: No
  Sender: FDA-Public Use
  Company Number: None

PATIENT
  Age: 52 Year
  Sex: Male

DRUGS (1)
  1. NIRMATRELVIR\RITONAVIR [Suspect]
     Active Substance: NIRMATRELVIR\RITONAVIR
     Dosage: OTHER QUANTITY : 300/1001MG;?FREQUENCY : TWICE A DAY;?
     Route: 048
     Dates: start: 20220706, end: 20220707

REACTIONS (4)
  - Taste disorder [None]
  - Asthenia [None]
  - Gastrointestinal sounds abnormal [None]
  - Therapy cessation [None]

NARRATIVE: CASE EVENT DATE: 20220707
